FAERS Safety Report 6018614-4 (Version None)
Quarter: 2008Q4

REPORT INFORMATION
  Report Type: 
  Country: None (occurrence: None)
  Receive Date: 20081223
  Receipt Date: 20081219
  Transmission Date: 20090506
  Serious: Yes (Death)
  Sender: FDA-Public Use
  Company Number: GR-ABBOTT-08P-066-0493780-00

PATIENT
  Age: 60 Year
  Sex: Female
  Weight: 67 kg

DRUGS (6)
  1. ZEMPLAR [Suspect]
     Indication: HYPERPARATHYROIDISM SECONDARY
     Dosage: DURING HEMODIALYSIS
     Route: 042
     Dates: start: 20080901, end: 20081202
  2. FORSENOL [Concomitant]
     Indication: HYPERPHOSPHATAEMIA
     Route: 048
     Dates: start: 20080901, end: 20081203
  3. PLAVIX [Concomitant]
     Indication: ANTICOAGULANT THERAPY
     Route: 048
     Dates: start: 20080901, end: 20081203
  4. ZOLPIDEM [Concomitant]
     Indication: DRUG USE FOR UNKNOWN INDICATION
     Dosage: 1/2 TAB, DAILY
     Route: 048
     Dates: start: 20080101, end: 20081202
  5. SUPERAMIN [Concomitant]
     Indication: HYPOVITAMINOSIS
     Dosage: DURING HEMODIALYSIS
     Route: 042
     Dates: start: 20080901, end: 20081202
  6. CERNEVIT-12 [Concomitant]
     Indication: HYPOVITAMINOSIS
     Dosage: DURING HEMODIALYSIS
     Route: 042
     Dates: start: 20080901, end: 20081202

REACTIONS (1)
  - CARDIAC ARREST [None]
